FAERS Safety Report 13493861 (Version 2)
Quarter: 2017Q2

REPORT INFORMATION
  Report Type: Spontaneous
  Country: JP (occurrence: JP)
  Receive Date: 20170427
  Receipt Date: 20170601
  Transmission Date: 20170830
  Serious: Yes (Hospitalization, Other)
  Sender: FDA-Public Use
  Company Number: JP-GILEAD-2017-0262304

PATIENT
  Age: 37 Year
  Sex: Male

DRUGS (7)
  1. PRIMPERAN [Concomitant]
     Active Substance: METOCLOPRAMIDE HYDROCHLORIDE
     Dosage: 1 MG, PRN
  2. LUNESTA [Suspect]
     Active Substance: ESZOPICLONE
     Indication: SLEEP DISORDER
     Dosage: 1 MG, PRN
     Route: 048
     Dates: start: 20170212, end: 20170323
  3. BARACLUDE TABLETS [Concomitant]
     Dosage: 0.5 MG, QD
  4. TENOFOVIR DISOPROXIL FUMARATE. [Suspect]
     Active Substance: TENOFOVIR DISOPROXIL FUMARATE
     Indication: ACUTE HEPATITIS B
     Dosage: 300 MG, QD
     Route: 048
     Dates: start: 20170209
  5. GASMOTIN [Concomitant]
     Active Substance: MOSAPRIDE CITRATE
     Dosage: 5 MG, TID
  6. BARACLUDE TABLETS [Concomitant]
     Indication: ACUTE HEPATITIS B
     Dosage: 0.5 MG, QD
     Dates: start: 20170220
  7. NEXIUM [Concomitant]
     Active Substance: ESOMEPRAZOLE MAGNESIUM
     Dosage: 20 MG, QD

REACTIONS (7)
  - Jaundice [Unknown]
  - Decreased appetite [Unknown]
  - Drug-induced liver injury [Recovering/Resolving]
  - Off label use [Not Recovered/Not Resolved]
  - Alanine aminotransferase increased [Recovered/Resolved]
  - Aspartate aminotransferase increased [Recovered/Resolved]
  - Product use in unapproved indication [Not Recovered/Not Resolved]

NARRATIVE: CASE EVENT DATE: 20170210
